FAERS Safety Report 8849552 (Version 1)
Quarter: 2012Q4

REPORT INFORMATION
  Report Type: 
  Country: US (occurrence: US)
  Receive Date: 20121019
  Receipt Date: 20121019
  Transmission Date: 20130627
  Serious: Yes (Other)
  Sender: FDA-Public Use
  Company Number: US-PFIZER INC-2012257079

PATIENT
  Age: 60 Year
  Sex: Female
  Weight: 59.9 kg

DRUGS (1)
  1. PREMPRO [Suspect]
     Indication: MENOPAUSAL SYMPTOMS
     Dosage: 0.45/1.5 mg, 1x/day
     Route: 048
     Dates: start: 2009

REACTIONS (4)
  - Blood cholesterol increased [Unknown]
  - Blood triglycerides increased [Unknown]
  - Malaise [Recovered/Resolved]
  - Headache [Unknown]
